FAERS Safety Report 6168103-1 (Version None)
Quarter: 2009Q2

REPORT INFORMATION
  Report Type: 
  Country: None (occurrence: None)
  Receive Date: 20090427
  Receipt Date: 20090416
  Transmission Date: 20091009
  Serious: Yes (Other)
  Sender: FDA-Public Use
  Company Number: US-PFIZER INC-2004235655US

PATIENT
  Sex: Female
  Weight: 61 kg

DRUGS (14)
  1. PROVERA [Suspect]
     Indication: HORMONE REPLACEMENT THERAPY
     Route: 048
     Dates: start: 19840101, end: 19980101
  2. PREMPRO [Suspect]
     Indication: HORMONE REPLACEMENT THERAPY
     Route: 065
     Dates: start: 19840101, end: 19980101
  3. PREMARIN [Suspect]
     Indication: HORMONE REPLACEMENT THERAPY
     Route: 065
     Dates: start: 19840101, end: 19980101
  4. MEDROXYPROGESTERONE ACETATE [Suspect]
     Indication: HORMONE REPLACEMENT THERAPY
     Dosage: UNK
     Dates: start: 19840101, end: 19980101
  5. DIGOXIN [Concomitant]
     Indication: CARDIAC DISORDER
     Route: 065
  6. WARFARIN SODIUM [Concomitant]
     Indication: CARDIAC DISORDER
     Route: 065
  7. NEUROBION FOR INJECTION [Concomitant]
     Indication: CARDIAC DISORDER
     Route: 065
  8. GARLIC [Concomitant]
     Indication: CARDIAC DISORDER
     Route: 065
  9. FOLIC ACID [Concomitant]
     Indication: CARDIAC DISORDER
     Route: 065
  10. POTASSIUM CHLORIDE [Concomitant]
     Indication: MINERAL SUPPLEMENTATION
     Route: 065
  11. SPIRONOLACTONE [Concomitant]
     Indication: FLUID IMBALANCE
     Route: 065
  12. METOLAZONE [Concomitant]
     Indication: FLUID IMBALANCE
     Route: 065
  13. FEXOFENADINE HYDROCHLORIDE [Concomitant]
     Indication: HYPERSENSITIVITY
     Route: 065
  14. SERTRALINE HCL [Concomitant]
     Indication: NERVOUSNESS
     Route: 065

REACTIONS (2)
  - MYOCARDIAL INFARCTION [None]
  - PULMONARY EMBOLISM [None]
